FAERS Safety Report 8212104-6 (Version None)
Quarter: 2012Q1

REPORT INFORMATION
  Report Type: 
  Country: None (occurrence: None)
  Receive Date: 20120315
  Receipt Date: 20120309
  Transmission Date: 20120608
  Serious: Yes (Hospitalization)
  Sender: FDA-Public Use
  Company Number: PHEH2012US005580

PATIENT
  Sex: Female

DRUGS (6)
  1. TOPAMAX [Concomitant]
  2. GILENYA [Suspect]
     Indication: MULTIPLE SCLEROSIS
     Dosage: 0.5 MG, QD
     Route: 048
     Dates: start: 20110901
  3. LORTAB [Concomitant]
     Dosage: UNK
  4. NAPROXEN [Concomitant]
  5. LEXAPRO [Concomitant]
  6. IMITREX [Concomitant]

REACTIONS (6)
  - DYSPHAGIA [None]
  - MEMORY IMPAIRMENT [None]
  - HYPOAESTHESIA [None]
  - CENTRAL NERVOUS SYSTEM LESION [None]
  - BRAIN OEDEMA [None]
  - BACK PAIN [None]
